APPROVED DRUG PRODUCT: HEPARIN SODIUM PRESERVATIVE FREE
Active Ingredient: HEPARIN SODIUM
Strength: 2,500 UNITS/ML
Dosage Form/Route: INJECTABLE;INJECTION
Application: N005264 | Product #014
Applicant: HOSPIRA INC
Approved: Apr 7, 1986 | RLD: No | RS: No | Type: DISCN